FAERS Safety Report 5513753-6 (Version None)
Quarter: 2007Q4

REPORT INFORMATION
  Report Type: 
  Country: None (occurrence: None)
  Receive Date: 20071113
  Receipt Date: 20071101
  Transmission Date: 20080405
  Serious: Yes (Other)
  Sender: FDA-Public Use
  Company Number: PHBS2007BR18464

PATIENT
  Age: 19 Year
  Sex: Male

DRUGS (7)
  1. CARBAMAZEPINE [Suspect]
     Indication: DEPRESSION
     Dosage: 200 MG, UNK
     Route: 048
  2. CARBAMAZEPINE [Suspect]
     Dosage: 3  TABLETS/DAY
     Route: 048
     Dates: start: 20000131
  3. TEGRETOL [Suspect]
     Indication: AGITATION
     Dosage: 200 MG, QD
     Dates: start: 20070601
  4. MELLARIL [Suspect]
     Dosage: 50 MG, UNK
     Route: 048
  5. CLONAZEPAM [Concomitant]
     Dosage: 2 MG, QD
     Route: 048
  6. FLUOXETINE [Concomitant]
     Indication: DEPRESSION
     Dosage: 20 MG, QD
  7. PURAN T4 [Concomitant]
     Indication: HYPERTHYROIDISM
     Dosage: 75 MG, QD
     Route: 048

REACTIONS (8)
  - ANXIETY [None]
  - DIZZINESS [None]
  - DYSSTASIA [None]
  - EYE PAIN [None]
  - FEELING ABNORMAL [None]
  - INSOMNIA [None]
  - MALAISE [None]
  - VISUAL DISTURBANCE [None]
